FAERS Safety Report 25882323 (Version 1)
Quarter: 2025Q4

REPORT INFORMATION
  Report Type: Spontaneous
  Country: JP (occurrence: JP)
  Receive Date: 20251006
  Receipt Date: 20251006
  Transmission Date: 20260117
  Serious: Yes (Hospitalization)
  Sender: TAKEDA
  Company Number: JP-TAKEDA-2025TJP009862

PATIENT
  Age: 2 Decade
  Sex: Male

DRUGS (3)
  1. INTUNIV [Interacting]
     Active Substance: GUANFACINE HYDROCHLORIDE
     Indication: Attention deficit hyperactivity disorder
     Dosage: 2 MILLIGRAM
  2. ETIZOLAM [Concomitant]
     Active Substance: ETIZOLAM
     Dosage: 1 MILLIGRAM
  3. LEMBOREXANT [Concomitant]
     Active Substance: LEMBOREXANT
     Dosage: 5 MILLIGRAM

REACTIONS (4)
  - Toxicity to various agents [Unknown]
  - Atrioventricular block [Recovered/Resolved]
  - Drug interaction [Unknown]
  - Alcohol interaction [Unknown]
